FAERS Safety Report 12510780 (Version 1)
Quarter: 2016Q2

REPORT INFORMATION
  Report Type: Spontaneous
  Country: US (occurrence: US)
  Receive Date: 20160629
  Receipt Date: 20160629
  Transmission Date: 20160815
  Serious: Yes (Other)
  Sender: FDA-Public Use
  Company Number: US-TEVA-669882USA

PATIENT
  Age: 39 Year
  Sex: Female

DRUGS (1)
  1. ZECUITY [Suspect]
     Active Substance: SUMATRIPTAN SUCCINATE
     Route: 062
     Dates: start: 20150324

REACTIONS (9)
  - Application site scar [Recovering/Resolving]
  - Application site pain [Recovered/Resolved]
  - Application site vesicles [Recovering/Resolving]
  - Application site discolouration [Recovering/Resolving]
  - Application site erythema [Recovered/Resolved]
  - Application site pustules [Recovering/Resolving]
  - Application site pruritus [Recovered/Resolved]
  - Application site inflammation [Recovered/Resolved]
  - Application site scab [Recovering/Resolving]

NARRATIVE: CASE EVENT DATE: 20150324
